FAERS Safety Report 6113681-1 (Version None)
Quarter: 2009Q1

REPORT INFORMATION
  Report Type: 
  Country: None (occurrence: None)
  Receive Date: 20090312
  Receipt Date: 20090302
  Transmission Date: 20090719
  Serious: Yes (Life-Threatening)
  Sender: FDA-Public Use
  Company Number: JP-PFIZER INC-2009166224

PATIENT

DRUGS (4)
  1. TOPOTECIN [Suspect]
     Indication: COLORECTAL CANCER
     Dosage: 240 MG/BODY INTERMITTENT (7/30, 8/20) 2 COURSE (240 MG)
     Route: 041
     Dates: start: 20080730, end: 20080820
  2. FLUOROURACIL [Suspect]
     Indication: COLORECTAL CANCER
     Dosage: 400 MG/M2 INTERMITTENT (7/30, 8/21) 2 COURSE (400MG/M2, 1 IN 2 WK)
     Route: 040
     Dates: start: 20080730, end: 20080821
  3. FLUOROURACIL [Suspect]
     Dosage: 2400 MG/M2 INTERMITTENT (7/30, 8/23) 2 COURSE DAY1/2 (2400MG/M2, 1 IN 2 WK)
     Route: 041
     Dates: start: 20080730, end: 20080823
  4. CALCIUM FOLINATE [Suspect]
     Indication: COLORECTAL CANCER
     Dosage: 200 MG/M2 INTERMITTENT (7/30, 8/21) 2 COURSE (200 MG/M2, 1 IN 2 WK)
     Route: 041
     Dates: start: 20080730, end: 20080821

REACTIONS (2)
  - INTERSTITIAL LUNG DISEASE [None]
  - LEUKOPENIA [None]
